FAERS Safety Report 16109500 (Version 2)
Quarter: 2019Q2

REPORT INFORMATION
  Report Type: Report from Study
  Country: TW (occurrence: TW)
  Receive Date: 20190324
  Receipt Date: 20190424
  Transmission Date: 20190711
  Serious: Yes (Other)
  Sender: FDA-Public Use
  Company Number: PHHY2018TW163474

PATIENT
  Age: 80 Year
  Sex: Female

DRUGS (6)
  1. VOTRIENT [Suspect]
     Active Substance: PAZOPANIB HYDROCHLORIDE
     Dosage: 600 OT, UNK
     Route: 048
     Dates: start: 20181115
  2. ACETAMINOPHEN. [Concomitant]
     Active Substance: ACETAMINOPHEN
     Indication: PAIN PROPHYLAXIS
     Dosage: 500 OT, UNK
     Route: 048
     Dates: start: 20180515, end: 20180518
  3. CEFADROXIL. [Concomitant]
     Active Substance: CEFADROXIL
     Indication: INFECTION PROPHYLAXIS
     Dosage: 500 OT, UNK
     Route: 048
     Dates: start: 20180515, end: 20180518
  4. MEGEST [Concomitant]
     Indication: PROPHYLAXIS
     Dosage: 10 OT, UNK
     Route: 048
     Dates: start: 20180531
  5. VOTRIENT [Suspect]
     Active Substance: PAZOPANIB HYDROCHLORIDE
     Indication: RENAL CELL CARCINOMA
     Dosage: 800 OT, UNK
     Route: 048
     Dates: start: 20180531, end: 20181114
  6. ROSUVASTATIN. [Concomitant]
     Active Substance: ROSUVASTATIN
     Indication: HYPERLIPIDAEMIA
     Dosage: 10 OT, UNK
     Route: 048
     Dates: start: 20120116, end: 20180823

REACTIONS (4)
  - Pain in extremity [Unknown]
  - Leukopenia [Unknown]
  - Thrombocytopenia [Unknown]
  - Hepatic function abnormal [Recovering/Resolving]

NARRATIVE: CASE EVENT DATE: 20180809
